FAERS Safety Report 21972071 (Version 1)
Quarter: 2023Q1

REPORT INFORMATION
  Report Type: Spontaneous
  Country: US (occurrence: US)
  Receive Date: 20230209
  Receipt Date: 20230209
  Transmission Date: 20230417
  Serious: No
  Sender: FDA-Public Use
  Company Number: US-JNJFOC-20230206443

PATIENT
  Age: 23 Year
  Sex: Male

DRUGS (2)
  1. MENS ROGAINE EXTRA STRENGTH [Suspect]
     Active Substance: MINOXIDIL
     Indication: Product used for unknown indication
     Dosage: FREQUENCY: 2X A DAY USED TO BE AND I CHANGED TO ONCE A DAY?DOSE: A CAPFUL AND A HALF
     Route: 065
     Dates: start: 202301, end: 2023
  2. MENS ROGAINE EXTRA STRENGTH [Suspect]
     Active Substance: MINOXIDIL
     Dosage: FREQUENCY: 2X A DAY USED TO BE AND I CHANGED TO ONCE A DAY?DOSE: A CAPFUL AND A HALF
     Route: 065
     Dates: start: 2023, end: 2023

REACTIONS (4)
  - Dyspnoea [Not Recovered/Not Resolved]
  - Chest pain [Not Recovered/Not Resolved]
  - Inappropriate schedule of product administration [Unknown]
  - Overdose [Unknown]

NARRATIVE: CASE EVENT DATE: 20230101
